FAERS Safety Report 8812545 (Version 4)
Quarter: 2012Q4

REPORT INFORMATION
  Report Type: Report from Study
  Country: US (occurrence: US)
  Receive Date: 20120927
  Receipt Date: 20121114
  Transmission Date: 20130627
  Serious: Yes (Other)
  Sender: FDA-Public Use
  Company Number: US-JNJFOC-20120910041

PATIENT
  Age: 65 Year
  Sex: Female
  Weight: 96.16 kg

DRUGS (18)
  1. SIMPONI [Suspect]
     Indication: PSORIATIC ARTHROPATHY
     Route: 058
     Dates: start: 20120607, end: 20120807
  2. DOXYCYCLINE [Suspect]
     Indication: PRODUCT USED FOR UNKNOWN INDICATION
  3. NIACINAMIDE [Suspect]
     Indication: PRODUCT USED FOR UNKNOWN INDICATION
  4. LOSARTAN [Concomitant]
     Indication: HYPERTENSION
     Dates: start: 2009
  5. TRIAMTERENE [Concomitant]
     Indication: HYPERTENSION
     Dates: start: 2000
  6. LEVOTHYROXINE [Concomitant]
     Indication: THYROID DISORDER
     Dates: start: 2009
  7. DHEA [Concomitant]
     Indication: ARTHRITIS
     Dates: start: 2011
  8. VITAMIN D2 [Concomitant]
     Indication: ARTHRITIS
     Dosage: 50,000 unit
     Dates: start: 2009
  9. ASPIRIN [Concomitant]
     Indication: CARDIAC DISORDER
     Dates: start: 2007
  10. VECTICAL [Concomitant]
     Indication: PSORIASIS
     Dates: start: 2011
  11. CLOBEX [Concomitant]
     Indication: PSORIASIS
     Dates: start: 201206
  12. EVISTA [Concomitant]
  13. FISH OIL [Concomitant]
  14. HCTZ [Concomitant]
  15. ULORIC [Concomitant]
  16. TRAMADOL [Concomitant]
  17. VITAMIN B COMPLEX [Concomitant]
  18. ZYRTEC [Concomitant]

REACTIONS (4)
  - Pemphigoid [Recovering/Resolving]
  - Nausea [Recovered/Resolved]
  - Headache [Recovered/Resolved]
  - Limb discomfort [Recovered/Resolved]
